FAERS Safety Report 26007595 (Version 1)
Quarter: 2025Q4

REPORT INFORMATION
  Report Type: Spontaneous
  Country: US (occurrence: None)
  Receive Date: 20251106
  Receipt Date: 20251106
  Transmission Date: 20260117
  Serious: Yes (Hospitalization)
  Sender: FDA-CTU
  Company Number: None

PATIENT
  Age: 77 Year

DRUGS (15)
  1. DUPIXENT [Suspect]
     Active Substance: DUPILUMAB
     Indication: Asthma
     Dates: start: 20231030
  2. ALBUTEROL HFA INH 8.5g [Concomitant]
  3. ALENDRONATE 10MG TABLETS [Concomitant]
  4. AMIODARONE 100mg tablets [Concomitant]
  5. ATORVASTATIN [Concomitant]
     Active Substance: ATORVASTATIN
  6. DILTIAZEM CD 180MG CAPSULES (24H) [Concomitant]
  7. ELIQUIS [Concomitant]
     Active Substance: APIXABAN
  8. LEVOTHYROXINE 50MCG TABLETS [Concomitant]
  9. MECLIZINE 25MG TABLETS [Concomitant]
  10. METOPROLOL ER SUCCINATE 200MG [Concomitant]
  11. VITAMINS [Concomitant]
     Active Substance: VITAMINS
  12. OMEPRAZOLE [Concomitant]
     Active Substance: OMEPRAZOLE
  13. TRELEGY ELLIPTA 100-62.5MCG INH [Concomitant]
  14. VITAMIN D [Concomitant]
     Active Substance: VITAMIN D NOS
  15. TYLENOL [Concomitant]
     Active Substance: ACETAMINOPHEN

REACTIONS (2)
  - Atrial fibrillation [None]
  - Tachycardia [None]

NARRATIVE: CASE EVENT DATE: 20251020
